FAERS Safety Report 5226009-6 (Version None)
Quarter: 2007Q1

REPORT INFORMATION
  Report Type: 
  Country: None (occurrence: None)
  Receive Date: 20070129
  Receipt Date: 20061016
  Transmission Date: 20070707
  Serious: Yes (Life-Threatening, Hospitalization)
  Sender: FDA-Public Use
  Company Number: 805#1#2006-00101

PATIENT
  Age: 77 Year
  Sex: Female

DRUGS (11)
  1. ALPROSTADIL [Suspect]
     Indication: LUMBAR SPINAL STENOSIS
     Dosage: 80 MCG (80MCG 1 IN 1 DAY(S))
     Route: 041
     Dates: start: 20060911, end: 20060918
  2. SODIUM BICARBONATE IN PLASTIC CONTAINER [Concomitant]
  3. ETODOLAC [Suspect]
     Dosage: 400 MG
     Route: 048
     Dates: start: 20060824, end: 20060925
  4. VALSARTAN [Concomitant]
  5. DOXAZOSIN MESYLATE [Concomitant]
  6. AMLODIPINE BESYLATE [Concomitant]
  7. TERBINAFINE HCL [Concomitant]
  8. ALENDRONATE SODIUM [Concomitant]
  9. SENNA LEAF (SENNA LEAF) [Concomitant]
  10. ZOLPIDEM TARTRATE [Concomitant]
  11. REBAMIPIDE (REBAMIPIDE) [Concomitant]

REACTIONS (7)
  - ASTHENIA [None]
  - BLOOD PRESSURE DECREASED [None]
  - CONTINUOUS HAEMODIAFILTRATION [None]
  - INFLAMMATION [None]
  - MALAISE [None]
  - PYREXIA [None]
  - RENAL FAILURE ACUTE [None]
